FAERS Safety Report 24341361 (Version 1)
Quarter: 2024Q3

REPORT INFORMATION
  Report Type: Spontaneous
  Country: US (occurrence: US)
  Receive Date: 20240920
  Receipt Date: 20240920
  Transmission Date: 20241016
  Serious: Yes (Other)
  Sender: STRIDES
  Company Number: None

PATIENT
  Age: 7 Decade
  Sex: Male

DRUGS (10)
  1. OXYCODONE [Suspect]
     Active Substance: OXYCODONE
     Indication: Back pain
     Dosage: UNK, QD,RECEIVED HIGH DOSES OF OXYCODONE (480 MME OF DAILY FENTANYL AND OXYCODONE)
     Route: 065
  2. OXYCODONE [Suspect]
     Active Substance: OXYCODONE
     Dosage: UNK, QD (REDUCED BY 50% (240 MME)
     Route: 065
  3. GABAPENTIN [Suspect]
     Active Substance: GABAPENTIN
     Indication: Back pain
     Dosage: UNK
     Route: 065
  4. GABAPENTIN [Suspect]
     Active Substance: GABAPENTIN
     Indication: Pain
  5. FENTANYL [Suspect]
     Active Substance: FENTANYL\FENTANYL CITRATE
     Indication: Back pain
     Dosage: UNK, QD, (RECEIVED HIGH DOSES OF OXYCODONE (480 MME OF DAILY FENTANYL AND OXYCODONE)
     Route: 065
  6. FENTANYL [Suspect]
     Active Substance: FENTANYL\FENTANYL CITRATE
     Dosage: UNK, QD, REDUCED BY 50% (240 MME OF FENTANYL AND OXYCODONE)
     Route: 065
  7. LYRICA [Suspect]
     Active Substance: PREGABALIN
     Indication: Back pain
     Dosage: UNK
     Route: 065
  8. KETAMINE [Suspect]
     Active Substance: KETAMINE
     Indication: Back pain
     Dosage: UNK
     Route: 065
  9. CYMBALTA [Suspect]
     Active Substance: DULOXETINE HYDROCHLORIDE
     Indication: Back pain
     Dosage: UNK
     Route: 065
  10. CANNABIS SATIVA SUBSP. INDICA TOP [Concomitant]
     Active Substance: CANNABIS SATIVA SUBSP. INDICA TOP
     Indication: Back pain
     Dosage: UNK
     Route: 065

REACTIONS (4)
  - Drug dependence [Unknown]
  - Drug ineffective [Unknown]
  - Somnolence [Unknown]
  - Off label use [Unknown]
